FAERS Safety Report 4804007-1 (Version None)
Quarter: 2005Q3

REPORT INFORMATION
  Report Type: 
  Country: None (occurrence: None)
  Receive Date: 20050920
  Receipt Date: 20050811
  Transmission Date: 20060218
  Serious: No
  Sender: FDA-Public Use
  Company Number: US-YAMANOUCHI-YPA20050409

PATIENT
  Age: 68 Year
  Sex: Female
  Weight: 62.1428 kg

DRUGS (3)
  1. VESICARE [Suspect]
     Indication: INCONTINENCE
     Dosage: 5 MG QD PO
     Route: 048
     Dates: start: 20050810, end: 20050810
  2. THYROID TAB [Concomitant]
  3. ZOLOFT [Concomitant]

REACTIONS (5)
  - DRY MOUTH [None]
  - HEADACHE [None]
  - HYPERHIDROSIS [None]
  - MALAISE [None]
  - VISUAL ACUITY REDUCED [None]
